FAERS Safety Report 9592883 (Version 1)
Quarter: 2013Q4

REPORT INFORMATION
  Report Type: Spontaneous
  Country: CN (occurrence: None)
  Receive Date: 20131002
  Receipt Date: 20131002
  Transmission Date: 20140711
  Serious: Yes (Death)
  Sender: FDA-Public Use
  Company Number: CN-ALKEM-000139

PATIENT
  Age: 54 Year
  Sex: Male

DRUGS (1)
  1. CEFUROXIME [Suspect]
     Indication: TRACHEITIS

REACTIONS (6)
  - Alcohol interaction [None]
  - Flushing [None]
  - Hyperhidrosis [None]
  - Asthenia [None]
  - Dyspnoea [None]
  - Loss of consciousness [None]
